FAERS Safety Report 17270894 (Version 1)
Quarter: 2020Q1

REPORT INFORMATION
  Report Type: Spontaneous
  Country: None (occurrence: TW)
  Receive Date: 20200115
  Receipt Date: 20200115
  Transmission Date: 20200409
  Serious: Yes (Death, Life-Threatening, Hospitalization, Other)
  Sender: FDA-Public Use
  Company Number: TW-ORION CORPORATION ORION PHARMA-20_00008152

PATIENT
  Age: 52 Year
  Sex: Male

DRUGS (3)
  1. METHOTREXATE (TRADE NAME UNKNOWN) [Suspect]
     Active Substance: METHOTREXATE
     Indication: HYPERSENSITIVITY VASCULITIS
     Route: 065
  2. AZATHIOPRINE. [Suspect]
     Active Substance: AZATHIOPRINE
     Indication: HYPERSENSITIVITY VASCULITIS
     Route: 065
  3. PREDNISOLONE. [Suspect]
     Active Substance: PREDNISOLONE
     Indication: HYPERSENSITIVITY VASCULITIS
     Route: 065

REACTIONS (11)
  - Varicella zoster virus infection [Fatal]
  - Product use in unapproved indication [Unknown]
  - Multiple organ dysfunction syndrome [Fatal]
  - Lactic acidosis [Fatal]
  - Hepatitis [Unknown]
  - Anaemia [Unknown]
  - Coma [Unknown]
  - Dyspnoea [Unknown]
  - Septic shock [Unknown]
  - Immunosuppression [Unknown]
  - Disseminated intravascular coagulation [Fatal]
